FAERS Safety Report 7618994-X (Version None)
Quarter: 2011Q3

REPORT INFORMATION
  Report Type: 
  Country: None (occurrence: None)
  Receive Date: 20110718
  Receipt Date: 20110708
  Transmission Date: 20111222
  Serious: Yes (Hospitalization)
  Sender: FDA-Public Use
  Company Number: GB-ASTRAZENECA-2011SE41763

PATIENT
  Sex: Male

DRUGS (1)
  1. IRESSA [Suspect]
     Indication: OESOPHAGEAL CARCINOMA
     Route: 048
     Dates: start: 20090909, end: 20100710

REACTIONS (1)
  - OESOPHAGEAL FISTULA [None]
